FAERS Safety Report 21159909 (Version 2)
Quarter: 2022Q3

REPORT INFORMATION
  Report Type: Spontaneous
  Country: JP (occurrence: JP)
  Receive Date: 20220802
  Receipt Date: 20220804
  Transmission Date: 20221027
  Serious: Yes (Other)
  Sender: FDA-Public Use
  Company Number: JP-ALK-ABELLO A/S-2022AA000533

PATIENT

DRUGS (1)
  1. MITICURE [Suspect]
     Active Substance: DERMATOPHAGOIDES FARINAE\DERMATOPHAGOIDES PTERONYSSINUS
     Indication: Product used for unknown indication
     Dosage: 10000 JAU
     Route: 060

REACTIONS (3)
  - Leukoplakia oral [Unknown]
  - Glossodynia [Unknown]
  - Tongue eruption [Unknown]
